FAERS Safety Report 4614873-0 (Version None)
Quarter: 2005Q1

REPORT INFORMATION
  Report Type: 
  Country: None (occurrence: None)
  Receive Date: 20050318
  Receipt Date: 20050318
  Transmission Date: 20050727
  Serious: No
  Sender: FDA-Public Use
  Company Number: None

PATIENT
  Sex: Female
  Weight: 80.7403 kg

DRUGS (6)
  1. COPAXONE [Suspect]
     Indication: MULTIPLE SCLEROSIS
     Dosage: STANDARD   DAILY   SUBCUTANEO
     Route: 058
     Dates: start: 20040731, end: 20050105
  2. FLOVENT [Concomitant]
  3. ZANTAC [Concomitant]
  4. ORAL CONTRACEPTIVE [Concomitant]
  5. EXCEDRIN (MIGRAINE) [Concomitant]
  6. SINGULAIR [Concomitant]

REACTIONS (5)
  - ARTERIAL DISORDER [None]
  - CHEST DISCOMFORT [None]
  - OEDEMA PERIPHERAL [None]
  - SKIN DISCOLOURATION [None]
  - SKIN NECROSIS [None]
